FAERS Safety Report 6557207-7 (Version None)
Quarter: 2010Q1

REPORT INFORMATION
  Report Type: 
  Country: None (occurrence: None)
  Receive Date: 20100127
  Receipt Date: 20100127
  Transmission Date: 20100710
  Serious: Yes (Other)
  Sender: FDA-Public Use
  Company Number: None

PATIENT
  Age: 23 Year
  Sex: Female
  Weight: 68.0396 kg

DRUGS (2)
  1. CYMBALTA [Suspect]
     Indication: DEPRESSION
     Dosage: 60MG 1XDAILY PO
     Route: 048
     Dates: start: 20090801, end: 20100106
  2. TRI-SPRINTEC ORAL CONTRACEPTIVE [Concomitant]

REACTIONS (6)
  - DEPRESSION [None]
  - FALL [None]
  - FATIGUE [None]
  - HYPERSOMNIA [None]
  - SUICIDAL IDEATION [None]
  - VERTIGO [None]
